FAERS Safety Report 5760897-X (Version None)
Quarter: 2008Q2

REPORT INFORMATION
  Report Type: 
  Country: None (occurrence: None)
  Receive Date: 20080606
  Receipt Date: 20080529
  Transmission Date: 20081010
  Serious: Yes (Hospitalization, Other)
  Sender: FDA-Public Use
  Company Number: US-AMGEN-US282980

PATIENT
  Sex: Male

DRUGS (9)
  1. ENBREL [Suspect]
     Route: 064
     Dates: start: 20050301
  2. TRAZODONE HCL [Suspect]
     Route: 064
  3. PLAQUENIL [Concomitant]
     Route: 064
     Dates: start: 20000101
  4. LOVENOX [Concomitant]
     Route: 064
  5. WELLBUTRIN [Concomitant]
     Route: 064
  6. CYMBALTA [Concomitant]
     Route: 064
  7. PRILOSEC [Concomitant]
     Route: 064
  8. ZOFRAN [Concomitant]
     Route: 064
  9. PHENERGAN [Concomitant]
     Route: 064

REACTIONS (3)
  - CONTINUOUS POSITIVE AIRWAY PRESSURE [None]
  - ENTERAL NUTRITION [None]
  - RESPIRATORY DISORDER NEONATAL [None]
